FAERS Safety Report 18936996 (Version 2)
Quarter: 2021Q4

REPORT INFORMATION
  Report Type: Spontaneous
  Country: TR (occurrence: TR)
  Receive Date: 20210225
  Receipt Date: 20211111
  Transmission Date: 20220304
  Serious: Yes (Hospitalization, Other)
  Sender: FDA-Public Use
  Company Number: TR-LUPIN PHARMACEUTICALS INC.-2021-02272

PATIENT
  Age: 12 Year
  Sex: Male

DRUGS (2)
  1. METHYLPREDNISOLONE [Suspect]
     Active Substance: METHYLPREDNISOLONE
     Indication: Psoriasis
     Dosage: UNK
     Route: 048
  2. CLOBETASOL [Suspect]
     Active Substance: CLOBETASOL
     Indication: Psoriasis
     Dosage: UNK (0.05 PERCENT), CREAM
     Route: 061

REACTIONS (3)
  - Hepatic steatosis [Unknown]
  - Cushing^s syndrome [Recovering/Resolving]
  - Adrenal insufficiency [Recovering/Resolving]
